FAERS Safety Report 5795468-2 (Version None)
Quarter: 2008Q2

REPORT INFORMATION
  Report Type: 
  Country: None (occurrence: None)
  Receive Date: 20080630
  Receipt Date: 20080619
  Transmission Date: 20081010
  Serious: Yes (Death, Other)
  Sender: FDA-Public Use
  Company Number: GB-JNJFOC-20080604934

PATIENT
  Age: 6 Decade
  Sex: Female
  Weight: 79 kg

DRUGS (7)
  1. REMICADE [Suspect]
     Indication: RHEUMATOID ARTHRITIS
     Route: 042
  2. METHOTREXATE [Concomitant]
  3. AMYTRIPTYLINE [Concomitant]
  4. FOLIC ACID [Concomitant]
  5. ROFECOXIB [Concomitant]
  6. DF-118 [Concomitant]
  7. CO-PROXAMOL [Concomitant]

REACTIONS (1)
  - LUNG CANCER METASTATIC [None]
